FAERS Safety Report 6566012-7 (Version None)
Quarter: 2010Q1

REPORT INFORMATION
  Report Type: 
  Country: None (occurrence: None)
  Receive Date: 20100129
  Receipt Date: 20100129
  Transmission Date: 20100710
  Serious: Yes (Other)
  Sender: FDA-Public Use
  Company Number: None

PATIENT
  Age: 59 Year
  Sex: Female
  Weight: 54.4316 kg

DRUGS (4)
  1. AMOXICILLIN [Suspect]
     Indication: EAR PAIN
     Dosage: 1 TABLET TWICE/DAY FOR 10 DAYS ORALLY
     Route: 048
     Dates: start: 20100108, end: 20100111
  2. AMOXICILLIN [Suspect]
     Indication: OROPHARYNGEAL PAIN
     Dosage: 1 TABLET TWICE/DAY FOR 10 DAYS ORALLY
     Route: 048
     Dates: start: 20100108, end: 20100111
  3. SULFAMETHOXAZOLE AND TRIMETHOPRIM [Suspect]
     Indication: EAR PAIN
     Dosage: 1 TABLET TWICE/DAY ORALLY
     Route: 048
     Dates: start: 20100113
  4. SULFAMETHOXAZOLE AND TRIMETHOPRIM [Suspect]
     Indication: OROPHARYNGEAL PAIN
     Dosage: 1 TABLET TWICE/DAY ORALLY
     Route: 048
     Dates: start: 20100113

REACTIONS (7)
  - ASTHENIA [None]
  - DECREASED APPETITE [None]
  - DEPRESSION [None]
  - DIARRHOEA [None]
  - NAUSEA [None]
  - VOMITING [None]
  - WEIGHT DECREASED [None]
